FAERS Safety Report 23674367 (Version 1)
Quarter: 2024Q1

REPORT INFORMATION
  Report Type: Report from Study
  Country: CA (occurrence: None)
  Receive Date: 20240326
  Receipt Date: 20240326
  Transmission Date: 20240410
  Serious: Yes (Other)
  Sender: FDA-Public Use
  Company Number: 2024A009435

PATIENT
  Sex: Female

DRUGS (7)
  1. IMFINZI [Suspect]
     Active Substance: DURVALUMAB
     Indication: HER2 positive biliary tract cancer
     Route: 042
     Dates: start: 20231208
  2. ACCELONDAL [Concomitant]
  3. OLANZAPINE [Concomitant]
     Active Substance: OLANZAPINE
  4. PROCHLORPERAZINE [Concomitant]
     Active Substance: PROCHLORPERAZINE
  5. DEXAMETHASONE [Concomitant]
     Active Substance: DEXAMETHASONE
  6. GEMCITABINE [Concomitant]
     Active Substance: GEMCITABINE
  7. CISPLATIN [Concomitant]
     Active Substance: CISPLATIN

REACTIONS (2)
  - Escherichia bacteraemia [Unknown]
  - Jaundice [Recovering/Resolving]
